FAERS Safety Report 15579176 (Version 1)
Quarter: 2018Q4

REPORT INFORMATION
  Report Type: Spontaneous
  Country: US (occurrence: US)
  Receive Date: 20181102
  Receipt Date: 20181102
  Transmission Date: 20190205
  Serious: Yes (Hospitalization, Other)
  Sender: FDA-Public Use
  Company Number: US-SA-2018SA298178

PATIENT
  Sex: Female

DRUGS (21)
  1. VENLAFAXINE HCL [Concomitant]
     Active Substance: VENLAFAXINE HYDROCHLORIDE
  2. GABAPENTIN. [Concomitant]
     Active Substance: GABAPENTIN
  3. METOPROLOL SUCCINATE. [Concomitant]
     Active Substance: METOPROLOL SUCCINATE
  4. LORAZEPAM. [Concomitant]
     Active Substance: LORAZEPAM
  5. TRAMADOL HCL [Concomitant]
     Active Substance: TRAMADOL HYDROCHLORIDE
  6. FLONASE [Concomitant]
     Active Substance: FLUTICASONE PROPIONATE
  7. ORTHO TRI CYCLEN LO [Concomitant]
     Active Substance: ETHINYL ESTRADIOL\NORGESTIMATE
  8. RANITIDINE HCL [Concomitant]
     Active Substance: RANITIDINE HYDROCHLORIDE
  9. CLAVULIN [AMOXICILLIN SODIUM;CLAVULANATE POTASSIUM] [Concomitant]
  10. VICODIN [Concomitant]
     Active Substance: ACETAMINOPHEN\HYDROCODONE BITARTRATE
  11. MONTELUKAST SODIUM. [Concomitant]
     Active Substance: MONTELUKAST SODIUM
  12. ONDANSETRON [Concomitant]
     Active Substance: ONDANSETRON
     Route: 048
  13. PREDNISONE. [Concomitant]
     Active Substance: PREDNISONE
  14. BUSPIRONE HCL [Concomitant]
     Active Substance: BUSPIRONE HYDROCHLORIDE
  15. TOLTERODINE TARTRATE. [Concomitant]
     Active Substance: TOLTERODINE TARTRATE
  16. TRAZODONE HYDROCHLORIDE. [Concomitant]
     Active Substance: TRAZODONE HYDROCHLORIDE
  17. MIRTAZAPINE. [Concomitant]
     Active Substance: MIRTAZAPINE
  18. CLINDAMYCIN. [Concomitant]
     Active Substance: CLINDAMYCIN
  19. AUBAGIO [Suspect]
     Active Substance: TERIFLUNOMIDE
     Dosage: 1 TABLET, QD
     Route: 048
  20. HYDROCODONE/ACETAMINOPHEN [Concomitant]
     Active Substance: ACETAMINOPHEN\HYDROCODONE
  21. BACLOFEN. [Concomitant]
     Active Substance: BACLOFEN

REACTIONS (5)
  - Multiple sclerosis relapse [Not Recovered/Not Resolved]
  - Balance disorder [Not Recovered/Not Resolved]
  - Eye movement disorder [Not Recovered/Not Resolved]
  - Fall [Not Recovered/Not Resolved]
  - Dysarthria [Not Recovered/Not Resolved]
